FAERS Safety Report 13410476 (Version 1)
Quarter: 2017Q2

REPORT INFORMATION
  Report Type: Spontaneous
  Country: US (occurrence: US)
  Receive Date: 20170406
  Receipt Date: 20170406
  Transmission Date: 20170830
  Serious: No
  Sender: FDA-Public Use
  Company Number: US-JNJFOC-20150810722

PATIENT
  Sex: Male

DRUGS (3)
  1. RISPERDAL [Suspect]
     Active Substance: RISPERIDONE
     Indication: IMPULSE-CONTROL DISORDER
     Dosage: PATIENT TOOK VARIED DOSES OF 2MG AND 3 MG FROM 1997-2002
     Route: 048
     Dates: start: 1997, end: 2002
  2. RISPERDAL [Suspect]
     Active Substance: RISPERIDONE
     Indication: ATTENTION DEFICIT/HYPERACTIVITY DISORDER
     Dosage: PATIENT TOOK VARIED DOSES OF 2MG AND 3 MG FROM 1997-2002
     Route: 048
     Dates: start: 1997, end: 2002
  3. RISPERDAL [Suspect]
     Active Substance: RISPERIDONE
     Indication: BIPOLAR DISORDER
     Dosage: PATIENT TOOK VARIED DOSES OF 2MG AND 3 MG FROM 1997-2002
     Route: 048
     Dates: start: 1997, end: 2002

REACTIONS (2)
  - Gynaecomastia [Unknown]
  - Obesity [Unknown]

NARRATIVE: CASE EVENT DATE: 2001
